FAERS Safety Report 25330212 (Version 1)
Quarter: 2025Q2

REPORT INFORMATION
  Report Type: Spontaneous
  Country: IL (occurrence: IL)
  Receive Date: 20250519
  Receipt Date: 20250519
  Transmission Date: 20250717
  Serious: Yes (Other)
  Sender: STRIDES
  Company Number: IL-STRIDES ARCOLAB LIMITED-2025SP006043

PATIENT
  Age: 54 Year
  Sex: Female

DRUGS (1)
  1. MINOCYCLINE [Suspect]
     Active Substance: MINOCYCLINE HYDROCHLORIDE
     Indication: Rosacea
     Route: 065

REACTIONS (2)
  - Polyarteritis nodosa [Recovered/Resolved]
  - Off label use [Unknown]
